APPROVED DRUG PRODUCT: PROGRAF
Active Ingredient: TACROLIMUS
Strength: EQ 1MG BASE/PACKET
Dosage Form/Route: FOR SUSPENSION;ORAL
Application: N210115 | Product #002
Applicant: ASTELLAS PHARMA US INC
Approved: May 24, 2018 | RLD: Yes | RS: Yes | Type: RX

EXCLUSIVITY:
Code: ODE-360 | Date: Jul 16, 2028